FAERS Safety Report 10079148 (Version 1)
Quarter: 2014Q2

REPORT INFORMATION
  Report Type: Spontaneous
  Country: US (occurrence: US)
  Receive Date: 20140415
  Receipt Date: 20140415
  Transmission Date: 20141212
  Serious: Yes (Other)
  Sender: FDA-Public Use
  Company Number: US-PURDUE-USA-2014-0112785

PATIENT
  Age: 50 Year
  Sex: Male

DRUGS (4)
  1. OXYCONTIN (NDA 22-272) [Suspect]
     Indication: PAIN
     Route: 048
  2. OXYCODONE HCL CR TABLETS (SIMILAR TO NDA 22-272) [Suspect]
     Indication: PAIN
     Dosage: UNK
     Route: 048
  3. PERCOCET                           /00867901/ [Suspect]
     Indication: PAIN
     Route: 048
  4. VICODIN [Suspect]
     Indication: PAIN
     Route: 048

REACTIONS (1)
  - Gastric cancer [Unknown]
